FAERS Safety Report 7207458-3 (Version None)
Quarter: 2010Q4

REPORT INFORMATION
  Report Type: 
  Country: None (occurrence: None)
  Receive Date: 20101220
  Receipt Date: 20101203
  Transmission Date: 20110411
  Serious: Yes (Hospitalization)
  Sender: FDA-Public Use
  Company Number: 2010S1001016

PATIENT
  Age: 78 Year
  Sex: Female

DRUGS (1)
  1. LIVALO [Suspect]
     Indication: CARDIOVASCULAR DISORDER
     Dosage: 2 MG; 1X; PO
     Route: 048
     Dates: start: 20080201

REACTIONS (2)
  - IMPAIRED GASTRIC EMPTYING [None]
  - URINARY TRACT INFECTION [None]
